FAERS Safety Report 12603239 (Version 1)
Quarter: 2016Q3

REPORT INFORMATION
  Report Type: Report from Study
  Country: DE (occurrence: FR)
  Receive Date: 20160728
  Receipt Date: 20160728
  Transmission Date: 20161109
  Serious: Yes (Other)
  Sender: FDA-Public Use
  Company Number: DE-ACTELION-A-US2016-135235

PATIENT
  Sex: Male

DRUGS (2)
  1. VENTAVIS [Suspect]
     Active Substance: ILOPROST
     Dosage: 2.5 MCG, UNK
     Route: 055
  2. VENTAVIS [Suspect]
     Active Substance: ILOPROST
     Indication: PULMONARY ARTERIAL HYPERTENSION
     Dosage: 5 MCG, 6ID
     Route: 055
     Dates: start: 20160316, end: 20160629

REACTIONS (10)
  - Headache [Unknown]
  - Nausea [Unknown]
  - Intentional product misuse [Unknown]
  - Pruritus [Unknown]
  - Oedema peripheral [Unknown]
  - Malaise [Unknown]
  - Drug ineffective [Unknown]
  - Dyspepsia [Unknown]
  - Flushing [Unknown]
  - Condition aggravated [Unknown]

NARRATIVE: CASE EVENT DATE: 20160316
